FAERS Safety Report 22975007 (Version 2)
Quarter: 2023Q4

REPORT INFORMATION
  Report Type: Spontaneous
  Country: DE (occurrence: DE)
  Receive Date: 20230923
  Receipt Date: 20231109
  Transmission Date: 20240110
  Serious: Yes (Other)
  Sender: FDA-Public Use
  Company Number: DE-002147023-NVSC2023DE192251

PATIENT
  Age: 28 Year
  Sex: Male

DRUGS (7)
  1. EVEROLIMUS [Suspect]
     Active Substance: EVEROLIMUS
     Indication: Graft versus host disease in lung
     Dosage: UNK
     Route: 065
     Dates: start: 201607
  2. IMATINIB [Suspect]
     Active Substance: IMATINIB
     Indication: Graft versus host disease in lung
     Dosage: UNK
     Route: 065
     Dates: start: 200302
  3. IMATINIB [Suspect]
     Active Substance: IMATINIB
     Indication: Chronic myeloid leukaemia
     Dosage: UNK
     Route: 065
     Dates: start: 201512, end: 201607
  4. CYCLOPHOSPHAMIDE [Suspect]
     Active Substance: CYCLOPHOSPHAMIDE
     Indication: Chronic myeloid leukaemia
     Dosage: UNK
     Route: 065
     Dates: start: 200505
  5. MYCOPHENOLATE MOFETIL [Suspect]
     Active Substance: MYCOPHENOLATE MOFETIL
     Indication: Immunosuppression
     Dosage: UNK
     Route: 065
     Dates: start: 200505
  6. MYCOPHENOLATE MOFETIL [Suspect]
     Active Substance: MYCOPHENOLATE MOFETIL
     Indication: Dyspnoea exertional
     Dosage: UNK
     Route: 065
     Dates: start: 200811
  7. TACROLIMUS [Suspect]
     Active Substance: TACROLIMUS
     Indication: Immunosuppression
     Dosage: UNK
     Route: 065
     Dates: start: 200505

REACTIONS (17)
  - Dyspnoea exertional [Not Recovered/Not Resolved]
  - Lung diffusion test decreased [Not Recovered/Not Resolved]
  - Graft versus host disease in lung [Not Recovered/Not Resolved]
  - Forced expiratory volume decreased [Unknown]
  - Graft versus host disease [Unknown]
  - Hypoxia [Unknown]
  - Graft versus host disease in gastrointestinal tract [Unknown]
  - Chronic graft versus host disease in skin [Unknown]
  - Respiratory failure [Unknown]
  - Organising pneumonia [Unknown]
  - Pneumonia cytomegaloviral [Unknown]
  - Restrictive pulmonary disease [Unknown]
  - Pulmonary fibrosis [Unknown]
  - Vital capacity decreased [Unknown]
  - Drug intolerance [Unknown]
  - Lung consolidation [Unknown]
  - Off label use [Unknown]

NARRATIVE: CASE EVENT DATE: 20030101
